FAERS Safety Report 5811154-4 (Version None)
Quarter: 2008Q3

REPORT INFORMATION
  Report Type: 
  Country: None (occurrence: None)
  Receive Date: 20080711
  Receipt Date: 20080317
  Transmission Date: 20090109
  Serious: No
  Sender: FDA-Public Use
  Company Number: 2008BM000056

PATIENT
  Age: 30 Year
  Sex: Female

DRUGS (4)
  1. KUVAN [Suspect]
     Indication: PHENYLKETONURIA
     Dosage: 100 MG; QD;PO
     Route: 048
     Dates: start: 20071128
  2. MULTI-VITAMINS [Concomitant]
  3. FISH OIL [Concomitant]
  4. CALCIUM CARBONATE [Concomitant]

REACTIONS (1)
  - ALOPECIA [None]
